FAERS Safety Report 10222117 (Version 1)
Quarter: 2014Q2

REPORT INFORMATION
  Report Type: Spontaneous
  Country: CL (occurrence: CL)
  Receive Date: 20140606
  Receipt Date: 20140606
  Transmission Date: 20141212
  Serious: No
  Sender: FDA-Public Use
  Company Number: CL-BIOMARINAP-CL-2014-103123

PATIENT
  Sex: 0

DRUGS (4)
  1. NAGLAZYME [Suspect]
     Indication: MUCOPOLYSACCHARIDOSIS VI
     Dosage: 20 MG, QW
     Route: 041
  2. NAGLAZYME [Suspect]
     Dosage: 30 MG, QW
     Route: 041
  3. CAPTOPRIL [Concomitant]
     Indication: HYPERTENSION
  4. ATENOLOL [Concomitant]
     Indication: HYPERTENSION

REACTIONS (4)
  - Nasopharyngitis [Unknown]
  - Hypotension [Unknown]
  - Hypertension [Unknown]
  - Headache [Unknown]
